FAERS Safety Report 4664973-4 (Version None)
Quarter: 2005Q2

REPORT INFORMATION
  Report Type: 
  Country: None (occurrence: None)
  Receive Date: 20050518
  Receipt Date: 20041221
  Transmission Date: 20051028
  Serious: Yes (Other)
  Sender: FDA-Public Use
  Company Number: PHEH2004US13548

PATIENT
  Age: 78 Year
  Sex: Male

DRUGS (7)
  1. METFORMIN [Concomitant]
     Indication: DIABETES MELLITUS
     Dosage: 500 MG, BID
  2. LIPITOR [Concomitant]
     Indication: DYSLIPIDAEMIA
     Dosage: 10 MG, UNK
  3. DICLOFENAC SODIUM [Concomitant]
     Indication: ARTHRITIS
  4. CLINDAMYCIN [Concomitant]
     Dates: start: 20040316, end: 20040330
  5. CLINDAMYCIN [Concomitant]
     Dates: start: 20040814, end: 20040928
  6. DILTIAZEM [Concomitant]
     Indication: HYPERTENSION
     Dosage: 180 MG, QD
  7. ZOMETA [Suspect]
     Indication: PROSTATE CANCER METASTATIC
     Dosage: 4 MG EVERY 2 MONTHS
     Route: 042
     Dates: start: 20021111, end: 20041028

REACTIONS (8)
  - ACTINOMYCOSIS [None]
  - INFECTION [None]
  - OSTEOMYELITIS [None]
  - OSTEONECROSIS [None]
  - PAIN IN JAW [None]
  - PERIODONTAL DISEASE [None]
  - PRURITUS [None]
  - WOUND DEBRIDEMENT [None]
